FAERS Safety Report 7037421-7 (Version None)
Quarter: 2010Q4

REPORT INFORMATION
  Report Type: 
  Country: None (occurrence: None)
  Receive Date: 20101011
  Receipt Date: 20101007
  Transmission Date: 20110411
  Serious: Yes (Hospitalization)
  Sender: FDA-Public Use
  Company Number: GBWYE593202MAY06

PATIENT
  Age: 67 Year

DRUGS (3)
  1. IBUPROFEN [Suspect]
     Dosage: UNKNOWN
     Route: 065
  2. MORPHINE [Concomitant]
     Indication: ANALGESIC THERAPY
     Dosage: UNKNOWN
  3. HEPARIN [Suspect]
     Indication: DEEP VEIN THROMBOSIS
     Dosage: UNKNOWN

REACTIONS (1)
  - BARRETT'S OESOPHAGUS [None]
